FAERS Safety Report 23015644 (Version 1)
Quarter: 2023Q4

REPORT INFORMATION
  Report Type: Spontaneous
  Country: FR (occurrence: FR)
  Receive Date: 20231002
  Receipt Date: 20231002
  Transmission Date: 20240109
  Serious: Yes (Life-Threatening, Other)
  Sender: FDA-Public Use
  Company Number: None

PATIENT
  Age: 71 Year
  Sex: Female
  Weight: 110 kg

DRUGS (7)
  1. DEXAMETHASONE [Suspect]
     Active Substance: DEXAMETHASONE
     Indication: General anaesthesia
     Dosage: 8 MILLIGRAM (1 TOTAL)
     Route: 042
     Dates: start: 20230828, end: 20230828
  2. SUFENTANIL [Suspect]
     Active Substance: SUFENTANIL
     Indication: General anaesthesia
     Dosage: 20 MICROGRAM (1 TOTAL)
     Route: 042
     Dates: start: 20230828, end: 20230828
  3. PROPOFOL [Suspect]
     Active Substance: PROPOFOL
     Indication: General anaesthesia
     Dosage: 200 MILLIGRAM (1 TOTAL)
     Route: 042
     Dates: start: 20230828, end: 20230828
  4. ROCURONIUM [Suspect]
     Active Substance: ROCURONIUM BROMIDE
     Indication: General anaesthesia
     Dosage: 50 MILLIGRAM (1 TOTAL)
     Route: 042
     Dates: start: 20230828, end: 20230828
  5. EPHEDRINE [Suspect]
     Active Substance: EPHEDRINE
     Indication: General anaesthesia
     Dosage: 9 MILLIGRAM (1 TOTAL)
     Route: 042
     Dates: start: 20230828, end: 20230828
  6. DROPERIDOL [Suspect]
     Active Substance: DROPERIDOL
     Indication: General anaesthesia
     Dosage: 1.25 MILLIGRAM (1 TOTAL)
     Route: 042
     Dates: start: 20230828, end: 20230828
  7. NOREPINEPHRINE [Suspect]
     Active Substance: NOREPINEPHRINE
     Indication: General anaesthesia
     Dosage: 63 MICROGRAM (1 TOTAL)
     Route: 042
     Dates: start: 20230828, end: 20230828

REACTIONS (1)
  - Anaphylactic reaction [Recovered/Resolved]

NARRATIVE: CASE EVENT DATE: 20230828
